FAERS Safety Report 4815183-9 (Version None)
Quarter: 2005Q4

REPORT INFORMATION
  Report Type: 
  Country: None (occurrence: None)
  Receive Date: 20051028
  Receipt Date: 20051019
  Transmission Date: 20060501
  Serious: Yes (Death, Life-Threatening)
  Sender: FDA-Public Use
  Company Number: US-MERCK-0510USA07898

PATIENT
  Age: 80 Year
  Sex: Male

DRUGS (2)
  1. VIOXX [Suspect]
     Indication: ARTHRITIS
     Route: 048
     Dates: end: 20031019
  2. VIOXX [Suspect]
     Indication: PAIN
     Route: 048
     Dates: end: 20031019

REACTIONS (1)
  - MYOCARDIAL INFARCTION [None]
